FAERS Safety Report 9690477 (Version 1)
Quarter: 2013Q4

REPORT INFORMATION
  Report Type: Spontaneous
  Country: US (occurrence: US)
  Receive Date: 20131115
  Receipt Date: 20131115
  Transmission Date: 20140711
  Serious: Yes (Other)
  Sender: FDA-Public Use
  Company Number: US-PFIZER INC-2013320832

PATIENT
  Age: 57 Year
  Sex: Female

DRUGS (3)
  1. ONDANSETRON [Suspect]
     Dosage: UNK
     Dates: end: 2011
  2. BUPROPION [Concomitant]
     Indication: MIGRAINE
     Dosage: UNK
  3. AMITRIPTYLINE [Concomitant]
     Indication: ABDOMINAL PAIN
     Dosage: UNK

REACTIONS (2)
  - Delirium [Unknown]
  - Psychotic disorder [Unknown]
